FAERS Safety Report 25393291 (Version 1)
Quarter: 2025Q2

REPORT INFORMATION
  Report Type: Spontaneous
  Country: FR (occurrence: FR)
  Receive Date: 20250604
  Receipt Date: 20250604
  Transmission Date: 20250716
  Serious: Yes (Other)
  Sender: ACCORD
  Company Number: None

PATIENT
  Age: 65 Year
  Sex: Female
  Weight: 88 kg

DRUGS (2)
  1. ROSUVASTATIN CALCIUM [Suspect]
     Active Substance: ROSUVASTATIN CALCIUM
     Indication: Hypercholesterolaemia
     Dosage: STRENGTH: 20 MG
     Dates: start: 20241001, end: 20250401
  2. PREDNISONE [Suspect]
     Active Substance: PREDNISONE
     Indication: Rheumatic disorder

REACTIONS (1)
  - Tendonitis [Not Recovered/Not Resolved]

NARRATIVE: CASE EVENT DATE: 20250220
